FAERS Safety Report 11674672 (Version 1)
Quarter: 2015Q4

REPORT INFORMATION
  Report Type: Spontaneous
  Country: US (occurrence: None)
  Receive Date: 20151028
  Receipt Date: 20151028
  Transmission Date: 20160304
  Serious: Yes (Other)
  Sender: FDA-Public Use
  Company Number: ADR-2015-00404

PATIENT
  Age: 40 Year
  Sex: Male

DRUGS (2)
  1. BACLOFEN INTRATHECAL [Suspect]
     Active Substance: BACLOFEN
     Indication: MUSCLE SPASTICITY
  2. AMPYRA [Suspect]
     Active Substance: DALFAMPRIDINE

REACTIONS (5)
  - Pyrexia [None]
  - Medical device site infection [None]
  - Flushing [None]
  - Bacterial infection [None]
  - Decreased interest [None]
